FAERS Safety Report 7907670-1 (Version None)
Quarter: 2011Q4

REPORT INFORMATION
  Report Type: 
  Country: None (occurrence: None)
  Receive Date: 20111109
  Receipt Date: 20111109
  Transmission Date: 20120403
  Serious: Yes (Life-Threatening, Other)
  Sender: FDA-Public Use
  Company Number: None

PATIENT
  Age: 67 Year
  Sex: Female
  Weight: 56.6996 kg

DRUGS (2)
  1. NUCYNTA [Suspect]
     Indication: FIBROMYALGIA
     Dosage: 75 MG, 1XDAY, PO
     Route: 048
  2. NUCYNTA [Suspect]
     Indication: NEURALGIA
     Dosage: 75 MG, 1XDAY, PO
     Route: 048

REACTIONS (10)
  - MOOD ALTERED [None]
  - ANXIETY [None]
  - AMNESIA [None]
  - DEPRESSION [None]
  - CONFUSIONAL STATE [None]
  - DIZZINESS [None]
  - ASTHENIA [None]
  - PANIC ATTACK [None]
  - SUICIDAL IDEATION [None]
  - HYPOTENSION [None]
